FAERS Safety Report 13412183 (Version 3)
Quarter: 2022Q4

REPORT INFORMATION
  Report Type: Spontaneous
  Country: US (occurrence: US)
  Receive Date: 20170406
  Receipt Date: 20221003
  Transmission Date: 20230113
  Serious: No
  Sender: FDA-Public Use
  Company Number: US-JNJFOC-20170314133

PATIENT
  Age: 20 Year
  Sex: Male

DRUGS (9)
  1. RISPERDAL [Suspect]
     Active Substance: RISPERIDONE
     Indication: Schizophrenia
     Dosage: RISPERIDONE 1 MG TWICE DAILY
     Route: 048
     Dates: start: 20080306
  2. RISPERDAL [Suspect]
     Active Substance: RISPERIDONE
     Indication: Psychotic disorder
     Dosage: VARYING DOSES OF 1 MG, 2 MG, 3MG, 4 MG
     Route: 048
     Dates: start: 20080311, end: 20081022
  3. RISPERDAL [Suspect]
     Active Substance: RISPERIDONE
     Route: 048
     Dates: start: 20081229, end: 20110702
  4. RISPERDAL [Suspect]
     Active Substance: RISPERIDONE
     Route: 048
     Dates: start: 20110707, end: 2011
  5. RISPERDAL [Suspect]
     Active Substance: RISPERIDONE
     Dosage: VARYING DOSE OF 2 MG, 4 MG AND 8 MG
     Route: 048
     Dates: start: 20111005, end: 20111020
  6. RISPERDAL [Suspect]
     Active Substance: RISPERIDONE
     Route: 048
     Dates: end: 20130306
  7. RISPERIDONE [Suspect]
     Active Substance: RISPERIDONE
     Indication: Product used for unknown indication
     Route: 048
  8. RISPERIDONE [Suspect]
     Active Substance: RISPERIDONE
     Indication: Schizophrenia
     Route: 048
     Dates: start: 20080306
  9. RISPERIDONE [Suspect]
     Active Substance: RISPERIDONE
     Dosage: VARYING DOSE OF 2 MG, 3 MG AND 4 MG
     Route: 048
     Dates: start: 20080717, end: 20130306

REACTIONS (7)
  - Hallucination, auditory [Recovered/Resolved]
  - Gynaecomastia [Unknown]
  - Emotional disorder [Unknown]
  - Asthenia [Unknown]
  - Hypersomnia [Unknown]
  - Fatigue [Unknown]
  - Treatment noncompliance [Unknown]

NARRATIVE: CASE EVENT DATE: 20080101
